FAERS Safety Report 9251744 (Version 1)
Quarter: 2013Q2

REPORT INFORMATION
  Report Type: Spontaneous
  Country: US (occurrence: US)
  Receive Date: 20130424
  Receipt Date: 20130424
  Transmission Date: 20140414
  Serious: No
  Sender: FDA-Public Use
  Company Number: US-009507513-1304USA014136

PATIENT
  Age: 51 Year
  Sex: Male

DRUGS (5)
  1. SAPHRIS [Suspect]
     Indication: BIPOLAR I DISORDER
     Dosage: 10 MG, HS
     Route: 060
     Dates: start: 201208, end: 20130418
  2. SAPHRIS [Suspect]
     Indication: MAJOR DEPRESSION
  3. LAMICTAL [Concomitant]
  4. LUVOX [Concomitant]
  5. KLONOPIN [Concomitant]

REACTIONS (4)
  - Weight increased [Unknown]
  - Depression [Unknown]
  - Poor quality sleep [Unknown]
  - Chest pain [Unknown]
